FAERS Safety Report 4763227-5 (Version None)
Quarter: 2005Q3

REPORT INFORMATION
  Report Type: 
  Country: None (occurrence: None)
  Receive Date: 20050902
  Receipt Date: 20050819
  Transmission Date: 20060218
  Serious: Yes (Hospitalization, Other)
  Sender: FDA-Public Use
  Company Number: GBWYE784629JUN05

PATIENT
  Age: 19 Year
  Sex: Female

DRUGS (8)
  1. TAZOCIN (PIPERACILLIN/TAZOBACTAM, INJECTION) [Suspect]
     Indication: CYSTIC FIBROSIS
     Dosage: 4.5 G 3X PER 1 DAY
     Route: 042
     Dates: start: 20050607, end: 20050621
  2. MIRTAZAPINE [Suspect]
     Indication: DEPRESSION
     Dosage: 35 MG 1X PER 1 DAY
     Route: 048
     Dates: start: 20050407, end: 20050623
  3. TOBRAMYCIN [Suspect]
     Indication: CYSTIC FIBROSIS
     Dosage: 600 MG 1X PER 1 DAY
     Route: 042
     Dates: start: 20050607, end: 20050621
  4. CREON [Concomitant]
  5. FLUCLOXACILLIN [Concomitant]
  6. VITAMIN A AND D IN COMBINATION [Concomitant]
  7. VITAMIN E [Concomitant]
  8. SERETIDE (SALMETEROL/FLUTICASONE) [Concomitant]

REACTIONS (5)
  - BLOOD CREATINE PHOSPHOKINASE INCREASED [None]
  - DRUG WITHDRAWAL SYNDROME [None]
  - MALAISE [None]
  - MYALGIA [None]
  - MYOSITIS [None]
